FAERS Safety Report 19714687 (Version 1)
Quarter: 2021Q3

REPORT INFORMATION
  Report Type: Spontaneous
  Country: CN (occurrence: CN)
  Receive Date: 20210818
  Receipt Date: 20210818
  Transmission Date: 20211014
  Serious: Yes (Life-Threatening, Hospitalization, Other)
  Sender: FDA-Public Use
  Company Number: CN-LUPIN PHARMACEUTICALS INC.-2021-14834

PATIENT
  Age: 62 Year
  Sex: Male

DRUGS (12)
  1. DIAZEPAM. [Concomitant]
     Active Substance: DIAZEPAM
     Indication: SEIZURE
     Dosage: 2.5 MILLIGRAM, QD
     Route: 065
  2. LEVETIRACETAM. [Suspect]
     Active Substance: LEVETIRACETAM
     Indication: SEIZURE
     Dosage: 1000 MILLIGRAM, QD
     Route: 065
  3. RISPERIDONE. [Concomitant]
     Active Substance: RISPERIDONE
     Indication: SCHIZOPHRENIA
     Dosage: UNK
     Route: 065
  4. CLOZAPINE. [Concomitant]
     Active Substance: CLOZAPINE
     Indication: SCHIZOPHRENIA
     Dosage: 62.5 MILLIGRAM, QD
     Route: 065
  5. ACICLOVIR [Concomitant]
     Active Substance: ACYCLOVIR
     Indication: ANTIVIRAL TREATMENT
     Dosage: 500 MILLIGRAM, QD
     Route: 065
  6. SODIUM VALPROATE [Concomitant]
     Active Substance: VALPROATE SODIUM
     Indication: SEIZURE
     Dosage: 100 MILLIGRAM, QD
     Route: 065
  7. CLOZAPINE. [Concomitant]
     Active Substance: CLOZAPINE
     Dosage: 125 MILLIGRAM
     Route: 065
  8. CEFOPERAZONE [Concomitant]
     Active Substance: CEFOPERAZONE
     Indication: ANTIBIOTIC THERAPY
     Dosage: 200 MILLIGRAM, QD
     Route: 065
  9. PERPHENAZINE. [Concomitant]
     Active Substance: PERPHENAZINE
     Indication: SCHIZOPHRENIA
     Dosage: UNK
     Route: 065
  10. MEROPENEM. [Concomitant]
     Active Substance: MEROPENEM
     Indication: ANTIBIOTIC THERAPY
     Dosage: 200 MILLIGRAM, QD
     Route: 065
  11. OLANZAPINE. [Concomitant]
     Active Substance: OLANZAPINE
     Indication: SCHIZOPHRENIA
     Dosage: UNK
     Route: 065
  12. QUETIAPINE. [Concomitant]
     Active Substance: QUETIAPINE
     Indication: SCHIZOPHRENIA
     Dosage: 300 MILLIGRAM, QD
     Route: 065

REACTIONS (3)
  - Pneumonia aspiration [Recovered/Resolved]
  - Respiratory failure [Recovered/Resolved]
  - Psychotic symptom [Recovered/Resolved]
